FAERS Safety Report 6635157-5 (Version None)
Quarter: 2010Q1

REPORT INFORMATION
  Report Type: 
  Country: None (occurrence: None)
  Receive Date: 20100315
  Receipt Date: 20100308
  Transmission Date: 20100710
  Serious: Yes (Hospitalization)
  Sender: FDA-Public Use
  Company Number: PHHO2010AR03103

PATIENT
  Sex: Male
  Weight: 59 kg

DRUGS (4)
  1. TASIGNA [Suspect]
     Indication: CHRONIC MYELOID LEUKAEMIA
     Dosage: 200 MG
     Route: 048
     Dates: start: 20090601, end: 20100208
  2. SUNITINIB MALATE [Concomitant]
  3. PANTOPRAZOLE [Concomitant]
     Indication: PROPHYLAXIS
  4. INSULIN MONOTARD [Concomitant]
     Indication: TYPE 2 DIABETES MELLITUS

REACTIONS (9)
  - ANAL ABSCESS [None]
  - ASTHENIA [None]
  - DECREASED APPETITE [None]
  - PERIRECTAL ABSCESS [None]
  - PYREXIA [None]
  - RENAL FAILURE [None]
  - RENAL INJURY [None]
  - TYPE 2 DIABETES MELLITUS [None]
  - WEIGHT DECREASED [None]
